FAERS Safety Report 6872247-6 (Version None)
Quarter: 2010Q3

REPORT INFORMATION
  Report Type: 
  Country: None (occurrence: None)
  Receive Date: 20100723
  Receipt Date: 20100712
  Transmission Date: 20110219
  Serious: Yes (Hospitalization, Other)
  Sender: FDA-Public Use
  Company Number: US-ELI_LILLY_AND_COMPANY-US200910000309

PATIENT
  Sex: Female

DRUGS (14)
  1. FORTEO [Suspect]
     Indication: OSTEOPOROSIS
     Dosage: 20 UG, DAILY (1/D)
     Dates: start: 20090826
  2. CALCIUM 600 + D [Concomitant]
     Dosage: 600 MG, UNK
  3. VITAMIN D [Concomitant]
     Dosage: 1.25 MG, 2/W
  4. NEORAL [Concomitant]
     Dosage: 50 MG, 2/D
  5. PREDNISONE [Concomitant]
     Dosage: 5 MG, EACH MORNING
  6. LEVOTHYROXINE SODIUM [Concomitant]
     Dosage: 0.1 MG, EACH MORNING
  7. AVALIDE [Concomitant]
     Dosage: UNK D/F, DAILY (1/D)
  8. LIPITOR [Concomitant]
     Dosage: 80 MG, EACH MORNING
  9. ZETIA [Concomitant]
     Dosage: 10 MG, EACH MORNING
  10. CLONAZEPAM [Concomitant]
     Dosage: 1 MG, 2/D
  11. DESMOPRESSIN ACETATE [Concomitant]
     Dosage: UNK, 2/D
     Route: 055
  12. PEPCID [Concomitant]
     Dosage: 20 MG, EACH EVENING
  13. ALLOPURINOL [Concomitant]
  14. VITAMIN D3 [Concomitant]
     Dosage: 1000 IU, 2/D

REACTIONS (4)
  - ARTHRALGIA [None]
  - FALL [None]
  - FEMUR FRACTURE [None]
  - FRACTURE NONUNION [None]
